FAERS Safety Report 21187353 (Version 2)
Quarter: 2022Q3

REPORT INFORMATION
  Report Type: Report from Study
  Country: NL (occurrence: NL)
  Receive Date: 20220808
  Receipt Date: 20220928
  Transmission Date: 20221027
  Serious: Yes (Other)
  Sender: FDA-Public Use
  Company Number: NL-ABBVIE-22K-114-4493513-00

PATIENT
  Sex: Female

DRUGS (4)
  1. CARBIDOPA\LEVODOPA [Suspect]
     Active Substance: CARBIDOPA\LEVODOPA
     Indication: Parkinson^s disease
     Dosage: DURATION TEXT: REMAINS 16 HOURS
     Route: 050
     Dates: start: 20161110
  2. CARBIDOPA\LEVODOPA [Suspect]
     Active Substance: CARBIDOPA\LEVODOPA
     Dosage: MD: 5.5ML, CD: 2.0ML, ED: 0.5ML?DURATION TEXT: REMAINS 16 HOURS
     Route: 050
  3. TERRACORTRIL [Concomitant]
     Indication: Product used for unknown indication
  4. RIVASTIGMINE [Concomitant]
     Active Substance: RIVASTIGMINE
     Indication: Product used for unknown indication

REACTIONS (11)
  - Sleep apnoea syndrome [Not Recovered/Not Resolved]
  - Choking [Not Recovered/Not Resolved]
  - Psychiatric symptom [Not Recovered/Not Resolved]
  - Device issue [Not Recovered/Not Resolved]
  - Sensitive skin [Not Recovered/Not Resolved]
  - Walking aid user [Unknown]
  - Cognitive disorder [Unknown]
  - Dyskinesia [Not Recovered/Not Resolved]
  - Tension [Unknown]
  - Middle insomnia [Unknown]
  - Memory impairment [Unknown]

NARRATIVE: CASE EVENT DATE: 20220101
